FAERS Safety Report 8374927-2 (Version None)
Quarter: 2012Q2

REPORT INFORMATION
  Report Type: 
  Country: None (occurrence: None)
  Receive Date: 20120521
  Receipt Date: 20120514
  Transmission Date: 20120825
  Serious: Yes (Death, Hospitalization)
  Sender: FDA-Public Use
  Company Number: US-ROCHE-1036272

PATIENT
  Sex: Female

DRUGS (2)
  1. AVASTIN [Suspect]
     Indication: PRODUCT USED FOR UNKNOWN INDICATION
     Route: 065
  2. IRINOTECAN HYDROCHLORIDE [Concomitant]

REACTIONS (5)
  - FALL [None]
  - HEADACHE [None]
  - NAUSEA [None]
  - DISEASE PROGRESSION [None]
  - TUMOUR HAEMORRHAGE [None]
